FAERS Safety Report 5905366-9 (Version None)
Quarter: 2008Q4

REPORT INFORMATION
  Report Type: 
  Country: None (occurrence: None)
  Receive Date: 20081001
  Receipt Date: 20080919
  Transmission Date: 20090506
  Serious: Yes (Life-Threatening, Hospitalization, Other)
  Sender: FDA-Public Use
  Company Number: GR-PFIZER INC-2008079112

PATIENT
  Age: 35 Year
  Sex: Female

DRUGS (1)
  1. BEGALIN-P [Suspect]
     Indication: PROPHYLAXIS
     Dosage: TEXT:2+1G
     Route: 042
     Dates: start: 20080812, end: 20080812

REACTIONS (3)
  - COMA [None]
  - LOSS OF CONSCIOUSNESS [None]
  - MUSCLE SPASMS [None]
